FAERS Safety Report 21144620 (Version 1)
Quarter: 2022Q3

REPORT INFORMATION
  Report Type: Spontaneous
  Country: US (occurrence: US)
  Receive Date: 20220728
  Receipt Date: 20220728
  Transmission Date: 20221027
  Serious: No
  Sender: FDA-Public Use
  Company Number: US-ELI_LILLY_AND_COMPANY-US202207001216

PATIENT

DRUGS (1)
  1. BEBTELOVIMAB [Suspect]
     Active Substance: BEBTELOVIMAB
     Indication: COVID-19
     Dosage: UNK, UNKNOWN
     Route: 065

REACTIONS (9)
  - Dyspnoea [Unknown]
  - General physical health deterioration [Unknown]
  - Asthenia [Unknown]
  - Heart rate increased [Unknown]
  - Palpitations [Unknown]
  - Peripheral swelling [Unknown]
  - Fatigue [Unknown]
  - Gait disturbance [Unknown]
  - Pruritus [Unknown]
